FAERS Safety Report 11997526 (Version 2)
Quarter: 2016Q1

REPORT INFORMATION
  Report Type: Report from Study
  Country: CA (occurrence: CA)
  Receive Date: 20160203
  Receipt Date: 20160205
  Transmission Date: 20160526
  Serious: Yes (Hospitalization)
  Sender: FDA-Public Use
  Company Number: CA-ABBVIE-16P-028-1550687-00

PATIENT
  Age: 57 Year
  Sex: Male

DRUGS (5)
  1. MODERIBA [Suspect]
     Active Substance: RIBAVIRIN
     Route: 048
     Dates: end: 20151122
  2. INSULIN [Concomitant]
     Active Substance: INSULIN NOS
     Dosage: INCREASED DOSE
     Route: 065
  3. HOLKIRA PAK [Suspect]
     Active Substance: DASABUVIR\OMBITASVIR\PARITAPREVIR\RITONAVIR
     Indication: HEPATITIS C
     Dosage: TWO TABS 12.5/75/50MG DAILY,ONE DASABUVIR 250MG TABLET BID
     Route: 048
     Dates: start: 20151122
  4. INSULIN [Concomitant]
     Active Substance: INSULIN NOS
     Indication: PRODUCT USED FOR UNKNOWN INDICATION
     Route: 065
  5. MODERIBA [Suspect]
     Active Substance: RIBAVIRIN
     Indication: HEPATITIS C
     Dosage: REDUCED DOSE
     Route: 048
     Dates: start: 20151122

REACTIONS (4)
  - Blood glucose abnormal [Recovering/Resolving]
  - Blood sodium decreased [Recovered/Resolved]
  - Glycosylated haemoglobin increased [Recovering/Resolving]
  - Blood magnesium decreased [Unknown]

NARRATIVE: CASE EVENT DATE: 201512
